FAERS Safety Report 14763385 (Version 2)
Quarter: 2018Q2

REPORT INFORMATION
  Report Type: Report from Study
  Country: MX (occurrence: MX)
  Receive Date: 20180416
  Receipt Date: 20180430
  Transmission Date: 20180711
  Serious: Yes (Life-Threatening)
  Sender: FDA-Public Use
  Company Number: PHHY2018MX061559

PATIENT
  Age: 82 Year
  Sex: Female

DRUGS (2)
  1. CO-DIOVAN [Suspect]
     Active Substance: HYDROCHLOROTHIAZIDE\VALSARTAN
     Indication: HYPERTENSION
     Dosage: 1 DF (HYDROCHLOROTHIAZIDE 12.5 MG AND VALSARTAN 160 MG), QD (30 YEARS AGO)
     Route: 048
  2. ALDROMASIL [Concomitant]
     Indication: HYPERTENSION
     Dosage: 1 DF, QD (1 YEAR AGO)
     Route: 048

REACTIONS (6)
  - Feeling abnormal [Unknown]
  - Blood pressure decreased [Not Recovered/Not Resolved]
  - General physical condition abnormal [Unknown]
  - Renal disorder [Not Recovered/Not Resolved]
  - Cholelithiasis [Unknown]
  - Dizziness [Recovered/Resolved]

NARRATIVE: CASE EVENT DATE: 201802
